FAERS Safety Report 10188327 (Version 1)
Quarter: 2014Q2

REPORT INFORMATION
  Report Type: Spontaneous
  Country: US (occurrence: None)
  Receive Date: 20140521
  Receipt Date: 20140521
  Transmission Date: 20141212
  Serious: Yes (Hospitalization)
  Sender: FDA-Public Use
  Company Number: None

PATIENT
  Age: 31 Year
  Sex: Female
  Weight: 90.72 kg

DRUGS (1)
  1. MICROGESTIN FE [Suspect]
     Indication: CONTRACEPTION
     Route: 048
     Dates: start: 20121007, end: 20140502

REACTIONS (1)
  - Thrombosis [None]
